FAERS Safety Report 4991416-3 (Version None)
Quarter: 2006Q2

REPORT INFORMATION
  Report Type: 
  Country: None (occurrence: None)
  Receive Date: 20060502
  Receipt Date: 20060419
  Transmission Date: 20061013
  Serious: Yes (Hospitalization)
  Sender: FDA-Public Use
  Company Number: 1-13790611MED06054

PATIENT
  Age: 59 Year
  Sex: Male

DRUGS (2)
  1. AMITRIPTYLINE TABLET 100 MG (MUTUAL) [Suspect]
     Indication: DEPRESSION
     Dosage: 400 MG ONCE DAILY AT BEDTIME, ORAL
     Route: 048
     Dates: start: 19880101, end: 20000101
  2. LOPRESSOR [Suspect]
     Dates: start: 19990101

REACTIONS (2)
  - CARDIAC FAILURE CONGESTIVE [None]
  - DYSPNOEA [None]
